FAERS Safety Report 23234450 (Version 1)
Quarter: 2023Q4

REPORT INFORMATION
  Report Type: Spontaneous
  Country: US (occurrence: None)
  Receive Date: 20231127
  Receipt Date: 20231127
  Transmission Date: 20240110
  Serious: No
  Sender: FDA-Public Use
  Company Number: None

PATIENT
  Age: 62 Year
  Sex: Female

DRUGS (2)
  1. POMALYST [Suspect]
     Active Substance: POMALIDOMIDE
  2. XARELTO [Suspect]
     Active Substance: RIVAROXABAN

REACTIONS (3)
  - Chest pain [None]
  - Chest discomfort [None]
  - Oesophageal ulcer [None]

NARRATIVE: CASE EVENT DATE: 20231116
